FAERS Safety Report 4273849-6 (Version None)
Quarter: 2004Q1

REPORT INFORMATION
  Report Type: 
  Country: None (occurrence: None)
  Receive Date: 20040115
  Receipt Date: 20040106
  Transmission Date: 20041129
  Serious: No
  Sender: FDA-Public Use
  Company Number: BDI-005720

PATIENT
  Age: 58 Year
  Sex: Female

DRUGS (2)
  1. ISOVUE-300 [Suspect]
     Indication: COMPUTERISED TOMOGRAM
     Dosage: 100 ML ONCE SC
     Route: 058
     Dates: start: 20040105, end: 20040105
  2. ISOVUE-300 [Suspect]
     Indication: OVARIAN CANCER
     Dosage: 100 ML ONCE SC
     Route: 058
     Dates: start: 20040105, end: 20040105

REACTIONS (5)
  - COMPARTMENT SYNDROME [None]
  - EXTRAVASATION [None]
  - OEDEMA PERIPHERAL [None]
  - PAIN IN EXTREMITY [None]
  - PROCEDURAL COMPLICATION [None]
